FAERS Safety Report 19488575 (Version 4)
Quarter: 2021Q4

REPORT INFORMATION
  Report Type: Report from Study
  Country: US (occurrence: US)
  Receive Date: 20210702
  Receipt Date: 20211005
  Transmission Date: 20220303
  Serious: Yes (Hospitalization, Other)
  Sender: FDA-Public Use
  Company Number: NVSC2021US142774

PATIENT
  Sex: Female

DRUGS (2)
  1. PIQRAY [Suspect]
     Active Substance: ALPELISIB
     Indication: Product used for unknown indication
     Dosage: UNK
     Route: 048
  2. PIQRAY [Suspect]
     Active Substance: ALPELISIB
     Dosage: UNK UNK, QD ((ONE PILL)
     Route: 065

REACTIONS (17)
  - Dysphagia [Unknown]
  - Heart rate increased [Unknown]
  - Nausea [Unknown]
  - Fatigue [Unknown]
  - Weight decreased [Unknown]
  - Dehydration [Unknown]
  - Drug intolerance [Unknown]
  - Product dose omission issue [Unknown]
  - Hypothyroidism [Unknown]
  - Hyperthyroidism [Unknown]
  - Pulmonary arterial pressure increased [Unknown]
  - Dyspnoea [Unknown]
  - Vision blurred [Unknown]
  - Diarrhoea [Unknown]
  - Stomatitis [Unknown]
  - Eating disorder [Unknown]
  - Inappropriate schedule of product administration [Unknown]
